FAERS Safety Report 23765468 (Version 1)
Quarter: 2024Q2

REPORT INFORMATION
  Report Type: Spontaneous
  Country: DE (occurrence: DE)
  Receive Date: 20240420
  Receipt Date: 20240420
  Transmission Date: 20240716
  Serious: Yes (Life-Threatening, Hospitalization)
  Sender: FDA-Public Use
  Company Number: DE-DCGMA-24203122

PATIENT
  Age: 60 Year
  Sex: Female
  Weight: 80 kg

DRUGS (1)
  1. KYPROLIS [Suspect]
     Active Substance: CARFILZOMIB
     Indication: Product used for unknown indication
     Dosage: UNK
     Route: 040

REACTIONS (3)
  - Ventricular hypokinesia [Recovering/Resolving]
  - Cardiac failure [Recovering/Resolving]
  - Ejection fraction abnormal [Recovering/Resolving]

NARRATIVE: CASE EVENT DATE: 20240318
